FAERS Safety Report 6241789-9 (Version None)
Quarter: 2009Q2

REPORT INFORMATION
  Report Type: 
  Country: None (occurrence: None)
  Receive Date: 20090623
  Receipt Date: 20090613
  Transmission Date: 20091009
  Serious: Yes (Hospitalization)
  Sender: FDA-Public Use
  Company Number: NL-MYLANLABS-2009S1010716

PATIENT
  Age: 62 Year
  Sex: Male

DRUGS (1)
  1. SOTALOL HYDROCHLORIDE [Suspect]
     Route: 048

REACTIONS (2)
  - CARDIAC ARREST [None]
  - SUICIDE ATTEMPT [None]
